FAERS Safety Report 8842814 (Version 1)
Quarter: 2012Q4

REPORT INFORMATION
  Report Type: 
  Country: IR (occurrence: IR)
  Receive Date: 20121016
  Receipt Date: 20121016
  Transmission Date: 20130627
  Serious: Yes (Hospitalization)
  Sender: FDA-Public Use
  Company Number: IR-WATSON-2012-17511

PATIENT
  Age: 48 Year
  Sex: Male

DRUGS (1)
  1. BACLOFEN [Suspect]
     Indication: BACK PAIN
     Dosage: 30 mg cumulative dose
     Route: 065

REACTIONS (5)
  - Encephalopathy [Recovered/Resolved]
  - Poisoning [Recovered/Resolved]
  - Depressed level of consciousness [None]
  - Toxicity to various agents [None]
  - Hypertension [None]
